FAERS Safety Report 7731708-8 (Version None)
Quarter: 2011Q3

REPORT INFORMATION
  Report Type: 
  Country: None (occurrence: None)
  Receive Date: 20110906
  Receipt Date: 20110808
  Transmission Date: 20111222
  Serious: Yes (Hospitalization)
  Sender: FDA-Public Use
  Company Number: IT-BAYER-2011-070336

PATIENT
  Age: 69 Year
  Sex: Male

DRUGS (11)
  1. TENORETIC 100 [Concomitant]
     Indication: HYPERTENSION
  2. LOSARTAN [Concomitant]
  3. SIMVASTATIN [Concomitant]
     Indication: DYSLIPIDAEMIA
  4. ASPIRIN [Suspect]
     Indication: PROPHYLAXIS
     Dosage: 100 MG, QD
     Route: 048
     Dates: start: 20100723, end: 20110723
  5. ASPIRIN [Suspect]
     Indication: PROPHYLAXIS
     Dosage: 75 MG, QD
     Route: 048
     Dates: start: 20100912, end: 20110723
  6. ALFUZOSIN HCL [Concomitant]
  7. HUMALOG [Concomitant]
     Indication: TYPE 2 DIABETES MELLITUS
  8. ALLOPURINOL [Concomitant]
  9. LANTUS [Concomitant]
  10. RAMIPRIL [Concomitant]
     Indication: HYPERTENSION
  11. METFORMIN HCL [Concomitant]

REACTIONS (2)
  - MELAENA [None]
  - GASTRITIS EROSIVE [None]
